FAERS Safety Report 6607434-5 (Version None)
Quarter: 2010Q1

REPORT INFORMATION
  Report Type: 
  Country: None (occurrence: None)
  Receive Date: 20100301
  Receipt Date: 20100219
  Transmission Date: 20100710
  Serious: Yes (Other)
  Sender: FDA-Public Use
  Company Number: US-ELI_LILLY_AND_COMPANY-US201002005947

PATIENT
  Sex: Female

DRUGS (13)
  1. GEMCITABINE HCL [Suspect]
     Indication: TRANSITIONAL CELL CARCINOMA
     Dosage: 1336 MG, OTHER
     Route: 042
     Dates: start: 20090218
  2. CETUXIMAB [Suspect]
     Indication: TRANSITIONAL CELL CARCINOMA
     Dosage: 835 MG, OTHER
     Route: 042
     Dates: start: 20090218
  3. CISPLATIN [Suspect]
     Indication: TRANSITIONAL CELL CARCINOMA
     Dosage: 84 MG, OTHER
     Route: 042
     Dates: start: 20090218
  4. XANAX [Concomitant]
     Dosage: 0.25 MG, DAILY (1/D)
     Route: 048
  5. NORVASC [Concomitant]
     Dosage: 5 MG, DAILY (1/D)
     Route: 048
  6. VITAMIN D [Concomitant]
     Route: 048
  7. CALCIUM [Concomitant]
  8. DEXAMETHASONE [Concomitant]
     Dosage: 4 MG, 2/D
     Route: 048
  9. ESTROPIPATE [Concomitant]
     Dosage: 0.625 MG, DAILY (1/D)
     Route: 048
  10. MINOCYCLINE HCL [Concomitant]
     Dosage: 100 MG, DAILY (1/D)
     Route: 048
  11. ZOFRAN [Concomitant]
     Indication: NAUSEA
     Dosage: 8 MG, 2/D
     Route: 048
  12. COMPAZINE [Concomitant]
     Dosage: 10 MG, AS NEEDED
     Route: 048
  13. HEPARIN [Concomitant]
     Indication: DEEP VEIN THROMBOSIS
     Dates: start: 20090505

REACTIONS (2)
  - DEEP VEIN THROMBOSIS [None]
  - NEUTROPENIA [None]
